FAERS Safety Report 5941062-X (Version None)
Quarter: 2008Q4

REPORT INFORMATION
  Report Type: 
  Country: None (occurrence: None)
  Receive Date: 20081104
  Receipt Date: 20081028
  Transmission Date: 20090506
  Serious: No
  Sender: FDA-Public Use
  Company Number: US-B.I. PHARMACEUTICALS,INC./RIDGEFIELD-2008-BP-16421BP

PATIENT
  Age: 65 Year
  Sex: Male

DRUGS (2)
  1. FLOMAX [Suspect]
     Indication: POLLAKIURIA
     Dosage: .8MG
     Route: 048
     Dates: start: 20071201
  2. FLOMAX [Suspect]
     Dosage: .4MG
     Route: 048
     Dates: start: 20071001, end: 20071101

REACTIONS (3)
  - BLOOD URINE PRESENT [None]
  - DRUG EFFECT DECREASED [None]
  - POLLAKIURIA [None]
